FAERS Safety Report 16897165 (Version 4)
Quarter: 2020Q1

REPORT INFORMATION
  Report Type: Report from Study
  Country: US (occurrence: US)
  Receive Date: 20191009
  Receipt Date: 20200131
  Transmission Date: 20200409
  Serious: Yes (Hospitalization, Other)
  Sender: FDA-Public Use
  Company Number: US-ROCHE-2427292

PATIENT
  Age: 62 Year
  Sex: Female
  Weight: 67.8 kg

DRUGS (9)
  1. ATEZOLIZUMAB. [Suspect]
     Active Substance: ATEZOLIZUMAB
     Dosage: OVER 60 MINUTES ON DAY 1
     Route: 042
     Dates: start: 20190108
  2. CISPLATIN. [Suspect]
     Active Substance: CISPLATIN
     Indication: PLEURAL MESOTHELIOMA MALIGNANT
     Dosage: OVER 2 HRS ON DAY 1?11/SEP/2018, NEST DOSE?ON 02/OCT/2018, SHE RECEIVED MOST RECENT DOSE OF CISPLATI
     Route: 042
     Dates: start: 20180731
  3. PEMETREXED. [Suspect]
     Active Substance: PEMETREXED
     Dosage: OVER 2 HOURS ON DAY 1.
     Route: 042
     Dates: start: 20181218
  4. CISPLATIN. [Suspect]
     Active Substance: CISPLATIN
     Dosage: OVER 2 HOURS ON DAY 1
     Route: 042
     Dates: start: 20181218
  5. ATEZOLIZUMAB. [Suspect]
     Active Substance: ATEZOLIZUMAB
     Indication: PLEURAL MESOTHELIOMA MALIGNANT
     Dosage: OVER 60 MINUTES ON DAY 1, ON 11/SEP/2018 NEXT DOSE
     Route: 042
     Dates: start: 20180731
  6. ATEZOLIZUMAB. [Suspect]
     Active Substance: ATEZOLIZUMAB
     Dosage: OVER 60 MINUTES ON DAY 1
     Route: 042
     Dates: start: 20181218
  7. ATEZOLIZUMAB. [Suspect]
     Active Substance: ATEZOLIZUMAB
     Dosage: ON 04/MAY/2019, SHE RECEIVED LAST DOSE OF ATEZOLIZUMAB PRIOR TO SAE.
     Route: 042
     Dates: start: 20190504, end: 20190504
  8. ATEZOLIZUMAB. [Suspect]
     Active Substance: ATEZOLIZUMAB
     Route: 042
     Dates: start: 20190405
  9. PEMETREXED. [Suspect]
     Active Substance: PEMETREXED
     Indication: PLEURAL MESOTHELIOMA MALIGNANT
     Dosage: OVER 10 MINUTES ON DAY 1?11/SEP/2018, NEXT DOSE?ON 02/OCT/2018, SHE RECEIVED MOST RECENT DOSE OF PEM
     Route: 042
     Dates: start: 20180731

REACTIONS (4)
  - Nausea [Unknown]
  - Febrile neutropenia [Unknown]
  - Enterocolitis infectious [Unknown]
  - Pyrexia [Recovered/Resolved]

NARRATIVE: CASE EVENT DATE: 20190305
